FAERS Safety Report 6244346-3 (Version None)
Quarter: 2009Q2

REPORT INFORMATION
  Report Type: 
  Country: None (occurrence: None)
  Receive Date: 20090625
  Receipt Date: 20090615
  Transmission Date: 20091009
  Serious: Yes (Other)
  Sender: FDA-Public Use
  Company Number: US-ROCHE-639409

PATIENT
  Age: 33 Year

DRUGS (7)
  1. MYCOPHENOLATE MOFETIL [Suspect]
     Route: 065
  2. PREDNISONE [Suspect]
     Route: 065
  3. PREDNISONE [Suspect]
     Dosage: TAPERED TO 5 MG/DAY BY THREE MONTHS.
     Route: 065
  4. TACROLIMUS [Suspect]
     Dosage: LEVELS TARGETED BETWEEN 10 AND 15 NG/ML.
     Route: 065
  5. RATG [Suspect]
     Dosage: DOSE: 1. 5 MG/KG IN SIX DOSES.
     Route: 065
  6. METHYLPREDNISOLONE [Suspect]
     Route: 065
  7. BASILIXIMAB [Suspect]
     Route: 065

REACTIONS (1)
  - TRANSPLANT REJECTION [None]
